FAERS Safety Report 25215640 (Version 1)
Quarter: 2025Q2

REPORT INFORMATION
  Report Type: Spontaneous
  Country: US (occurrence: US)
  Receive Date: 20250418
  Receipt Date: 20250418
  Transmission Date: 20250716
  Serious: No
  Sender: Phathom Pharmaceuticals
  Company Number: US-PHATHOM PHARMACEUTICALS INC.-2025PHT00662

PATIENT
  Age: 52 Year
  Sex: Female
  Weight: 68.04 kg

DRUGS (1)
  1. VOQUEZNA DUAL PAK [Suspect]
     Active Substance: AMOXICILLIN\VONOPRAZAN FUMARATE
     Dosage: 1 DOSAGE UNITS, 1X/DAY
     Route: 048
     Dates: start: 20250315

REACTIONS (2)
  - Illness [Unknown]
  - Nausea [Unknown]

NARRATIVE: CASE EVENT DATE: 20250301
